FAERS Safety Report 25624006 (Version 1)
Quarter: 2025Q3

REPORT INFORMATION
  Report Type: Spontaneous
  Country: US (occurrence: US)
  Receive Date: 20250730
  Receipt Date: 20250730
  Transmission Date: 20251021
  Serious: Yes (Hospitalization, Other)
  Sender: SANOFI AVENTIS
  Company Number: US-SA-2025SA217889

PATIENT
  Age: 27 Year
  Sex: Female

DRUGS (30)
  1. REZUROCK [Suspect]
     Active Substance: BELUMOSUDIL
     Indication: Graft versus host disease
     Dosage: 200 MG, QD
     Route: 048
  2. JAKAFI [Concomitant]
     Active Substance: RUXOLITINIB
     Dosage: 5 MG, BID
     Route: 048
  3. ACYCLOVIR [Concomitant]
     Active Substance: ACYCLOVIR
  4. AJOVY [Concomitant]
     Active Substance: FREMANEZUMAB-VFRM
  5. AMMONIUM LACTATE [Concomitant]
     Active Substance: AMMONIUM LACTATE
  6. ATIVAN [Concomitant]
     Active Substance: LORAZEPAM
  7. Chelated magnesium [Concomitant]
  8. CIPROFLOXACIN [Concomitant]
     Active Substance: CIPROFLOXACIN
  9. CLARITIN [Concomitant]
     Active Substance: LORATADINE
  10. BETAMETHASONE\CLOTRIMAZOLE [Concomitant]
     Active Substance: BETAMETHASONE\CLOTRIMAZOLE
  11. DIFLUCAN [Concomitant]
     Active Substance: FLUCONAZOLE
  12. ELIQUIS [Concomitant]
     Active Substance: APIXABAN
  13. FAMOTIDINE [Concomitant]
     Active Substance: FAMOTIDINE
  14. KLONOPIN [Concomitant]
     Active Substance: CLONAZEPAM
  15. Levsin/sl [Concomitant]
  16. MAGNESIUM OXIDE [Concomitant]
     Active Substance: MAGNESIUM OXIDE
  17. MARINOL [Concomitant]
     Active Substance: DRONABINOL
  18. MIDODRINE [Concomitant]
     Active Substance: MIDODRINE
  19. MINIPRESS [Concomitant]
     Active Substance: PRAZOSIN HYDROCHLORIDE
  20. NARCAN [Concomitant]
     Active Substance: NALOXONE HYDROCHLORIDE
  21. OXYBUTYNIN CHLORIDE [Concomitant]
     Active Substance: OXYBUTYNIN CHLORIDE
  22. PEPCID [Concomitant]
     Active Substance: FAMOTIDINE
  23. PREDNISONE [Concomitant]
     Active Substance: PREDNISONE
  24. PROCHLORPERAZINE MALEATE [Concomitant]
     Active Substance: PROCHLORPERAZINE MALEATE
  25. REGLAN [Concomitant]
     Active Substance: METOCLOPRAMIDE HYDROCHLORIDE
  26. TACROLIMUS [Concomitant]
     Active Substance: TACROLIMUS
  27. TRANEXAMIC ACID [Concomitant]
     Active Substance: TRANEXAMIC ACID
  28. ZOLOFT [Concomitant]
     Active Substance: SERTRALINE HYDROCHLORIDE
  29. ZYPREXA [Concomitant]
     Active Substance: OLANZAPINE
  30. GABAPENTIN [Concomitant]
     Active Substance: GABAPENTIN

REACTIONS (1)
  - Sepsis [Recovered/Resolved]
